FAERS Safety Report 5269901-9 (Version None)
Quarter: 2007Q1

REPORT INFORMATION
  Report Type: 
  Country: None (occurrence: None)
  Receive Date: 20070320
  Receipt Date: 20070312
  Transmission Date: 20070707
  Serious: Yes (Other)
  Sender: FDA-Public Use
  Company Number: GB-GLAXOSMITHKLINE-B0462633A

PATIENT
  Age: 89 Year
  Sex: Male
  Weight: 68 kg

DRUGS (12)
  1. ROSIGLITAZONE MALEATE [Suspect]
     Route: 048
     Dates: start: 20070207, end: 20070214
  2. CLOPIDOGREL [Concomitant]
     Dates: start: 20030619
  3. DIFFLAM [Concomitant]
     Dates: start: 20001116
  4. FUROSEMIDE [Concomitant]
     Dates: start: 19960517
  5. GLIBENCLAMIDE [Concomitant]
     Dates: start: 20070207
  6. ISOSORBIDE MONONITRATE [Concomitant]
     Dates: start: 20030929
  7. LACTULOSE [Concomitant]
     Dates: start: 20070207
  8. METFORMIN HYDROCHLORIDE [Concomitant]
     Dates: end: 20070123
  9. NITRAZEPAM [Concomitant]
     Dates: start: 19950214
  10. PERINDOPRIL TERT-BUTYLAMINE [Concomitant]
     Dates: start: 20060920
  11. DIASTIX [Concomitant]
     Dates: start: 19950214
  12. PEPTAC [Concomitant]
     Dosage: 50ML PER DAY
     Dates: start: 20001115

REACTIONS (2)
  - AMNESIA [None]
  - CONFUSIONAL STATE [None]
